FAERS Safety Report 7416582-1 (Version None)
Quarter: 2011Q2

REPORT INFORMATION
  Report Type: 
  Country: None (occurrence: None)
  Receive Date: 20110415
  Receipt Date: 20110407
  Transmission Date: 20111010
  Serious: Yes (Hospitalization)
  Sender: FDA-Public Use
  Company Number: US-BIOGENIDEC-2010BI040018

PATIENT
  Age: 42 Year
  Sex: Female

DRUGS (22)
  1. NUVIGIL [Concomitant]
     Indication: FATIGUE
  2. ADVAIR HFA [Concomitant]
  3. NORVASC [Concomitant]
  4. SENNA [Concomitant]
  5. ALBUTEROL [Concomitant]
  6. FENTANYL-100 [Concomitant]
     Route: 062
  7. NUVIGIL [Concomitant]
  8. NEXIUM [Concomitant]
  9. TYSABRI [Suspect]
     Indication: MULTIPLE SCLEROSIS
     Route: 042
     Dates: start: 20100312
  10. SPIRONOLACTONE [Concomitant]
  11. REMERON [Concomitant]
  12. ZANAFLEX [Concomitant]
  13. TRAMADOL [Concomitant]
  14. VYVANSE [Concomitant]
     Indication: FATIGUE
  15. EFFEXOR [Concomitant]
     Indication: PAIN
     Dates: start: 20100101
  16. AMPYRA [Concomitant]
  17. ASPIRIN [Concomitant]
  18. COZAAR [Concomitant]
  19. FLONASE [Concomitant]
  20. LIDODERM [Concomitant]
     Route: 062
  21. TOPROL-XL [Concomitant]
  22. XYZAL [Concomitant]

REACTIONS (17)
  - HEADACHE [None]
  - HYPOAESTHESIA FACIAL [None]
  - CONTUSION [None]
  - FALL [None]
  - WEIGHT DECREASED [None]
  - FATIGUE [None]
  - PAIN [None]
  - SINUSITIS [None]
  - NASOPHARYNGITIS [None]
  - URINARY TRACT INFECTION [None]
  - ADVERSE DRUG REACTION [None]
  - MOBILITY DECREASED [None]
  - EYE PAIN [None]
  - BLADDER DISORDER [None]
  - MULTIPLE SCLEROSIS RELAPSE [None]
  - CONVERSION DISORDER [None]
  - INTERVERTEBRAL DISC DISORDER [None]
